FAERS Safety Report 14692305 (Version 1)
Quarter: 2018Q1

REPORT INFORMATION
  Report Type: Spontaneous
  Country: DK (occurrence: DK)
  Receive Date: 20180329
  Receipt Date: 20180329
  Transmission Date: 20180509
  Serious: Yes (Death, Congenital Anomaly)
  Sender: FDA-Public Use
  Company Number: DK-CIPLA LTD.-2018DK12519

PATIENT

DRUGS (4)
  1. CRINONE [Concomitant]
     Active Substance: PROGESTERONE
     Indication: INFERTILITY
     Dosage: 1 DF, UNK
     Route: 067
     Dates: start: 20170515, end: 20170922
  2. CETIRIZINE [Suspect]
     Active Substance: CETIRIZINE HYDROCHLORIDE
     Indication: NAUSEA
     Dosage: 10 MG, UNK STRYKE, 10 MG, DAILY
     Route: 064
     Dates: start: 20170628, end: 20170716
  3. EMPERAL [Concomitant]
     Active Substance: METOCLOPRAMIDE HYDROCHLORIDE
     Indication: NAUSEA
     Dosage: 10 MG, UNK STYRKE: 10 MG ; AS NECESSARY
     Route: 048
     Dates: start: 20170616, end: 20170822
  4. ZOFRAN [Concomitant]
     Active Substance: ONDANSETRON HYDROCHLORIDE
     Indication: NAUSEA
     Dosage: 4 MG, UNK DOSIS: 1 TABLET MAX 2 GANGE DAGLIGT. STYRKE: 4 MG; AS NECESSARY
     Route: 048
     Dates: start: 20170822, end: 20170922

REACTIONS (3)
  - Abortion induced [Fatal]
  - Ventricular septal defect [Fatal]
  - Foetal exposure during pregnancy [Recovered/Resolved]

NARRATIVE: CASE EVENT DATE: 20170101
